FAERS Safety Report 5021412-1 (Version None)
Quarter: 2006Q2

REPORT INFORMATION
  Report Type: 
  Country: None (occurrence: None)
  Receive Date: 20060608
  Receipt Date: 20051118
  Transmission Date: 20061013
  Serious: Yes (Other)
  Sender: FDA-Public Use
  Company Number: PHMT2005CA00679

PATIENT
  Age: 70 Year
  Sex: Female
  Weight: 123 kg

DRUGS (10)
  1. ZOMETA [Suspect]
     Indication: BREAST CANCER METASTATIC
     Dosage: 4 MG, EVERY SIX WEEKS
     Route: 042
     Dates: start: 20020101, end: 20051220
  2. ARIMIDEX [Concomitant]
     Dosage: 1MG, QDO
     Route: 048
  3. METFORMIN [Concomitant]
  4. LOPRESSOR [Concomitant]
  5. ATIVAN [Concomitant]
  6. TORADOL [Concomitant]
  7. GLUCOPHAGE [Concomitant]
  8. SYNTHROID [Concomitant]
  9. NEURONTIN [Concomitant]
  10. AVANDIA [Concomitant]

REACTIONS (8)
  - BONE DEBRIDEMENT [None]
  - BONE DISORDER [None]
  - DYSGEUSIA [None]
  - IMPAIRED HEALING [None]
  - ORAL PAIN [None]
  - OSTEONECROSIS [None]
  - TOOTH DISORDER [None]
  - TOOTH EXTRACTION [None]
